FAERS Safety Report 7365489-7 (Version None)
Quarter: 2011Q1

REPORT INFORMATION
  Report Type: 
  Country: None (occurrence: None)
  Receive Date: 20110322
  Receipt Date: 20081001
  Transmission Date: 20110831
  Serious: Yes (Death)
  Sender: FDA-Public Use
  Company Number: US-BAYER-201038740NA

PATIENT
  Sex: Male
  Weight: 82 kg

DRUGS (23)
  1. INSULIN [Concomitant]
     Dosage: 5 UNITS /HR
     Route: 042
     Dates: start: 20060120
  2. ZINACEF [Concomitant]
     Dosage: 1.5 GRAM
     Route: 042
     Dates: start: 20060120
  3. SODIUM NITROPRUSSIDE [Concomitant]
     Dosage: 1.5 MCG/KG/MIN
     Route: 042
     Dates: start: 20060119
  4. PROTAMINE SULFATE [Concomitant]
     Dosage: 35 CC
     Route: 042
     Dates: start: 20060120
  5. PROTAMINE SULFATE [Concomitant]
     Dosage: 350 CC CARDIAC BYPASS PUMP
     Dates: start: 20060120
  6. LASIX [Concomitant]
     Indication: PRODUCT USED FOR UNKNOWN INDICATION
     Dosage: UNK
     Dates: start: 20060121
  7. HEPARIN [Concomitant]
     Dosage: 500 CC
     Route: 042
     Dates: start: 20060120
  8. TRASYLOL [Suspect]
     Indication: AORTIC SURGERY
     Dosage: BOLUS OF 200 CC
     Route: 042
     Dates: start: 20060120, end: 20060120
  9. TRASYLOL [Suspect]
     Dosage: 1 ML TEST DOSE
     Route: 042
     Dates: start: 20060120, end: 20060120
  10. ZINACEF [Concomitant]
  11. PROCARDIA [Concomitant]
     Dosage: UNK
     Dates: start: 20040622
  12. RED BLOOD CELLS [Concomitant]
     Indication: AORTIC SURGERY
     Dosage: 1000 ML
     Route: 042
     Dates: start: 20060120
  13. CARDENE [Concomitant]
     Indication: HYPERTENSION
     Dosage: 9 MG / HR
     Route: 042
     Dates: start: 20060119
  14. VANCOMYCIN [Concomitant]
     Dosage: 1 GRAM
     Route: 042
     Dates: start: 20060120
  15. ANALGESICS [Concomitant]
     Dosage: UNK
     Dates: start: 19850101, end: 20060101
  16. VITAMIN E [Concomitant]
     Dosage: 400 U, UNK
     Route: 048
     Dates: start: 20060119
  17. FRESH FROZEN PLASMA [Concomitant]
     Indication: AORTIC SURGERY
     Dosage: 1,255 ML
     Route: 042
     Dates: start: 20060120
  18. NIPRIDE [Concomitant]
     Indication: HYPERTENSION
     Dosage: UNK
     Route: 041
     Dates: start: 20060119, end: 20060123
  19. ACETYLSALICYLIC ACID SRT [Concomitant]
     Dosage: 325 MG
     Route: 048
     Dates: start: 20060119
  20. PLATELETS [Concomitant]
     Dosage: 563 ML
     Route: 042
     Dates: start: 20060120
  21. TRASYLOL [Suspect]
     Dosage: 50 CC/HR
     Route: 042
     Dates: start: 20060120, end: 20060120
  22. NITROGLYCERIN [Concomitant]
     Dosage: 400 ML
     Dates: start: 20060120
  23. EPHEDRINE [Concomitant]
     Dosage: 5 MG, UNK
     Route: 042
     Dates: start: 20060120

REACTIONS (7)
  - ANXIETY [None]
  - EMOTIONAL DISTRESS [None]
  - CARDIO-RESPIRATORY ARREST [None]
  - PAIN [None]
  - AORTIC DISSECTION [None]
  - STRESS [None]
  - INJURY [None]
